FAERS Safety Report 13303888 (Version 1)
Quarter: 2017Q1

REPORT INFORMATION
  Report Type: Report from Study
  Country: None (occurrence: US)
  Receive Date: 20170307
  Receipt Date: 20170307
  Transmission Date: 20170428
  Serious: Yes (Other)
  Sender: FDA-Public Use
  Company Number: US-ABBVIE-17K-163-1845019-00

PATIENT
  Age: 29 Year
  Sex: Female
  Weight: 68.1 kg

DRUGS (5)
  1. LOVENOX [Concomitant]
     Active Substance: ENOXAPARIN SODIUM
     Indication: CARDIOLIPIN ANTIBODY
  2. PRENATAL VITAMINS [Concomitant]
     Active Substance: VITAMINS
     Indication: PRODUCT USED FOR UNKNOWN INDICATION
  3. HUMIRA [Suspect]
     Active Substance: ADALIMUMAB
     Route: 058
     Dates: start: 201612
  4. PITOCIN [Concomitant]
     Active Substance: OXYTOCIN
     Indication: INDUCED LABOUR
  5. HUMIRA [Suspect]
     Active Substance: ADALIMUMAB
     Indication: CROHN^S DISEASE
     Route: 058
     Dates: start: 2011, end: 2016

REACTIONS (7)
  - Exposure during pregnancy [Unknown]
  - Pain [Recovered/Resolved]
  - Pelvic pain [Recovered/Resolved]
  - Blindness transient [Recovered/Resolved]
  - Live birth [Unknown]
  - Dyspepsia [Recovered/Resolved]
  - Constipation [Recovered/Resolved]

NARRATIVE: CASE EVENT DATE: 2014
